FAERS Safety Report 14912809 (Version 1)
Quarter: 2018Q2

REPORT INFORMATION
  Report Type: Spontaneous
  Country: US (occurrence: US)
  Receive Date: 20180501
  Receipt Date: 20180501
  Transmission Date: 20180711
  Serious: Yes (Other)
  Sender: FDA-Public Use
  Company Number: None

PATIENT
  Age: 56 Year
  Sex: Female
  Weight: 57.6 kg

DRUGS (6)
  1. ZOFRAN [Concomitant]
     Active Substance: ONDANSETRON HYDROCHLORIDE
  2. CYMBALTA [Concomitant]
     Active Substance: DULOXETINE HYDROCHLORIDE
  3. METHOCARBONAL 500MG TAB/ROBAXIN = GENERIC [Suspect]
     Active Substance: METHOCARBAMOL
     Indication: FIBROMYALGIA
     Dosage: ?          QUANTITY:1 TABLET(S);?
     Dates: start: 20180328, end: 20180418
  4. FENTANYL. [Concomitant]
     Active Substance: FENTANYL
  5. GABAPENTIN. [Concomitant]
     Active Substance: GABAPENTIN
  6. PERCOCET [Concomitant]
     Active Substance: ACETAMINOPHEN\OXYCODONE HYDROCHLORIDE

REACTIONS (3)
  - Metabolic disorder [None]
  - Weight increased [None]
  - Mobility decreased [None]

NARRATIVE: CASE EVENT DATE: 20180328
